FAERS Safety Report 23184893 (Version 4)
Quarter: 2023Q4

REPORT INFORMATION
  Report Type: Report from Study
  Country: US (occurrence: US)
  Receive Date: 20231115
  Receipt Date: 20231211
  Transmission Date: 20240110
  Serious: Yes (Hospitalization, Other)
  Sender: FDA-Public Use
  Company Number: US-ALXN-A202303011

PATIENT
  Sex: Female

DRUGS (3)
  1. ULTOMIRIS [Suspect]
     Active Substance: RAVULIZUMAB-CWVZ
     Indication: Myasthenia gravis
     Dosage: UNK
     Route: 065
  2. SOLIRIS [Suspect]
     Active Substance: ECULIZUMAB
     Indication: Myasthenia gravis
     Dosage: UNK
     Route: 065
  3. PREDNISONE [Suspect]
     Active Substance: PREDNISONE
     Indication: Product used for unknown indication
     Dosage: UNK
     Route: 065

REACTIONS (16)
  - Choking [Unknown]
  - Loss of consciousness [Unknown]
  - Dizziness [Unknown]
  - Memory impairment [Unknown]
  - Diplopia [Recovering/Resolving]
  - Arthropathy [Unknown]
  - Regurgitation [Unknown]
  - Wound secretion [Unknown]
  - Fall [Recovering/Resolving]
  - Contusion [Unknown]
  - Erythema [Unknown]
  - Incontinence [Unknown]
  - Pain [Unknown]
  - Dysphagia [Not Recovered/Not Resolved]
  - Arthralgia [Unknown]
  - Nasopharyngitis [Unknown]

NARRATIVE: CASE EVENT DATE: 20220101
